FAERS Safety Report 8504188-2 (Version None)
Quarter: 2012Q3

REPORT INFORMATION
  Report Type: 
  Country: None (occurrence: None)
  Receive Date: 20120711
  Receipt Date: 20120703
  Transmission Date: 20120928
  Serious: Yes (Other)
  Sender: FDA-Public Use
  Company Number: US-ASTRAZENECA-2012SE42694

PATIENT
  Age: 68 Year
  Sex: Male
  Weight: 104.3 kg

DRUGS (11)
  1. LOVAZA [Concomitant]
  2. SYMBICORT [Suspect]
     Indication: TOTAL LUNG CAPACITY DECREASED
     Dosage: 80/4.5, 2 PUFFS, TWO TIMES A DAY
     Route: 055
     Dates: start: 20120622
  3. LASIX [Concomitant]
  4. COREG [Concomitant]
  5. SINGULAIR [Concomitant]
  6. FLUTICASONE PROPIONATE [Concomitant]
  7. SYMBICORT [Suspect]
     Indication: PULMONARY FUNCTION TEST
     Dosage: 80/4.5, 2 PUFFS, TWO TIMES A DAY
     Route: 055
     Dates: start: 20120622
  8. SYMBICORT [Suspect]
     Indication: CHRONIC OBSTRUCTIVE PULMONARY DISEASE
     Dosage: 80/4.5, 2 PUFFS, TWO TIMES A DAY
     Route: 055
     Dates: start: 20120622
  9. COZAAR [Concomitant]
  10. LISINOPRIL [Concomitant]
  11. ALLOPURINOL [Concomitant]

REACTIONS (6)
  - CARDIAC FAILURE [None]
  - STOMATITIS [None]
  - COUGH [None]
  - DYSGEUSIA [None]
  - SINUSITIS [None]
  - OFF LABEL USE [None]
